FAERS Safety Report 15582788 (Version 2)
Quarter: 2018Q4

REPORT INFORMATION
  Report Type: Spontaneous
  Country: US (occurrence: US)
  Receive Date: 20181105
  Receipt Date: 20181213
  Transmission Date: 20190205
  Serious: No
  Sender: FDA-Public Use
  Company Number: US-JNJFOC-20181035177

PATIENT
  Age: 19 Year
  Sex: Female
  Weight: 53.52 kg

DRUGS (1)
  1. SIMPONI [Suspect]
     Active Substance: GOLIMUMAB
     Indication: ARTHRITIS
     Route: 058
     Dates: start: 201805

REACTIONS (3)
  - Accidental exposure to product [Unknown]
  - Device malfunction [Unknown]
  - Product dose omission [Unknown]

NARRATIVE: CASE EVENT DATE: 20181023
